FAERS Safety Report 7717323-0 (Version None)
Quarter: 2011Q3

REPORT INFORMATION
  Report Type: 
  Country: None (occurrence: None)
  Receive Date: 20110826
  Receipt Date: 20110826
  Transmission Date: 20111222
  Serious: Yes (Other)
  Sender: FDA-Public Use
  Company Number: None

PATIENT
  Age: 80 Year
  Sex: Female
  Weight: 65.7716 kg

DRUGS (2)
  1. CIPROFLOXACIN [Suspect]
     Dosage: 2 TABLETS DAY ORAL
     Route: 048
     Dates: start: 20110812
  2. SULFAMETHOXAZOLE AND TRIMETHOPRIM [Suspect]
     Indication: KIDNEY INFECTION
     Dosage: 2 TABLETS DAY ORAL
     Route: 048
     Dates: start: 20110812

REACTIONS (6)
  - TACHYPNOEA [None]
  - DIARRHOEA [None]
  - DIZZINESS [None]
  - ASTHENIA [None]
  - HEART RATE IRREGULAR [None]
  - DYSPNOEA [None]
